FAERS Safety Report 18657218 (Version 2)
Quarter: 2021Q1

REPORT INFORMATION
  Report Type: Spontaneous
  Country: US (occurrence: US)
  Receive Date: 20201223
  Receipt Date: 20210218
  Transmission Date: 20210419
  Serious: Yes (Hospitalization, Other)
  Sender: FDA-Public Use
  Company Number: US-BAYER-2020-280051

PATIENT
  Age: 79 Year
  Sex: Male
  Weight: 82.5 kg

DRUGS (3)
  1. ALEVE [Suspect]
     Active Substance: NAPROXEN SODIUM
     Indication: BACK DISORDER
     Dosage: UNK
     Dates: start: 2019
  2. FIRDAPSE [Suspect]
     Active Substance: AMIFAMPRIDINE PHOSPHATE
     Indication: MYASTHENIC SYNDROME
     Dosage: 20 MG, TID
     Route: 048
     Dates: start: 2019
  3. WARFARIN [Suspect]
     Active Substance: WARFARIN
     Dosage: UNK
     Dates: start: 20200727, end: 20200728

REACTIONS (3)
  - Vomiting [Recovered/Resolved]
  - Labelled drug-drug interaction medication error [None]
  - Gastric ulcer haemorrhage [Recovered/Resolved]

NARRATIVE: CASE EVENT DATE: 202007
